FAERS Safety Report 9845092 (Version 1)
Quarter: 2014Q1

REPORT INFORMATION
  Report Type: Spontaneous
  Country: GB (occurrence: None)
  Receive Date: 20140122
  Receipt Date: 20140122
  Transmission Date: 20141002
  Serious: Yes (Other)
  Sender: FDA-Public Use
  Company Number: SYM-2014-14796

PATIENT
  Age: 67 Year
  Sex: Female

DRUGS (2)
  1. METRONIDAZOLE [Suspect]
     Indication: TOOTH ABSCESS
     Dates: start: 20131213, end: 20131213
  2. THYROXINE SODIUM [Suspect]

REACTIONS (3)
  - Dyspnoea [None]
  - Swelling [None]
  - Urticaria [None]
